FAERS Safety Report 4345239-9 (Version None)
Quarter: 2004Q2

REPORT INFORMATION
  Report Type: 
  Country: None (occurrence: None)
  Receive Date: 20040420
  Receipt Date: 20040406
  Transmission Date: 20050107
  Serious: Yes (Death)
  Sender: FDA-Public Use
  Company Number: A-CH2004-05554

PATIENT
  Age: 69 Year
  Sex: Female
  Weight: 48 kg

DRUGS (2)
  1. TRACLEER [Suspect]
     Indication: PULMONARY HYPERTENSION
     Dosage: 62.5, BID, ORAL; 125 MG, BID, ORAL
     Route: 048
     Dates: start: 20021008, end: 20021201
  2. TRACLEER [Suspect]
     Indication: PULMONARY HYPERTENSION
     Dosage: 62.5, BID, ORAL; 125 MG, BID, ORAL
     Route: 048
     Dates: start: 20021201, end: 20030429

REACTIONS (1)
  - DEATH [None]
